FAERS Safety Report 6347677-1 (Version None)
Quarter: 2009Q3

REPORT INFORMATION
  Report Type: 
  Country: None (occurrence: None)
  Receive Date: 20090910
  Receipt Date: 20090907
  Transmission Date: 20100115
  Serious: Yes (Other)
  Sender: FDA-Public Use
  Company Number: DE-BRISTOL-MYERS SQUIBB COMPANY-14772099

PATIENT
  Age: 68 Year
  Sex: Female

DRUGS (3)
  1. COAPROVEL TABS 150MG/12.5MG [Suspect]
     Dosage: 1 DOSAGE FORM = 150MG/12.5MG
     Route: 048
  2. RAMIPRIL + HCTZ [Suspect]
     Dosage: FORM = TABS
     Route: 048
  3. HYDROCHLOROTHIAZIDE [Suspect]
     Route: 065

REACTIONS (2)
  - MYASTHENIA GRAVIS [None]
  - VISUAL FIELD DEFECT [None]
